FAERS Safety Report 12203389 (Version 2)
Quarter: 2016Q2

REPORT INFORMATION
  Report Type: Report from Study
  Country: NL (occurrence: NL)
  Receive Date: 20160323
  Receipt Date: 20160411
  Transmission Date: 20160815
  Serious: Yes (Hospitalization)
  Sender: FDA-Public Use
  Company Number: PHHY2015NL037191

PATIENT
  Age: 69 Year
  Sex: Male

DRUGS (1)
  1. SANDOSTATIN LAR DEPOT [Suspect]
     Active Substance: OCTREOTIDE ACETATE
     Indication: IMPAIRED GASTRIC EMPTYING
     Dosage: 20 MG PER 2 ML 1X PER 3 WEEKS
     Route: 030

REACTIONS (4)
  - Hernia [Unknown]
  - Psoriasis [Unknown]
  - Product use issue [Unknown]
  - Gout [Unknown]

NARRATIVE: CASE EVENT DATE: 201502
